FAERS Safety Report 14190743 (Version 2)
Quarter: 2017Q4

REPORT INFORMATION
  Report Type: Spontaneous
  Country: CO (occurrence: CO)
  Receive Date: 20171115
  Receipt Date: 20171204
  Transmission Date: 20180321
  Serious: Yes (Hospitalization)
  Sender: FDA-Public Use
  Company Number: US-ASTRAZENECA-2017SF15696

PATIENT
  Age: 94 Day
  Sex: Female
  Weight: 4 kg

DRUGS (4)
  1. SYNAGIS [Suspect]
     Active Substance: PALIVIZUMAB
     Indication: PREMATURE BABY
     Route: 030
     Dates: start: 20170926
  2. PEDIALYTE [Concomitant]
     Active Substance: POTASSIUM CITRATE\SODIUM CITRATE\ZINC
     Indication: PRODUCT USED FOR UNKNOWN INDICATION
  3. ERNEX [Concomitant]
     Indication: PRODUCT USED FOR UNKNOWN INDICATION
  4. SYNAGIS [Suspect]
     Active Substance: PALIVIZUMAB
     Indication: HEART DISEASE CONGENITAL
     Route: 030
     Dates: start: 20170926

REACTIONS (3)
  - Infantile apnoea [Recovered/Resolved]
  - Haemoglobin decreased [Recovering/Resolving]
  - Malnutrition [Recovering/Resolving]

NARRATIVE: CASE EVENT DATE: 20171105
